FAERS Safety Report 4486499-3 (Version None)
Quarter: 2004Q4

REPORT INFORMATION
  Report Type: 
  Country: None (occurrence: None)
  Receive Date: 20041021
  Receipt Date: 20041008
  Transmission Date: 20050328
  Serious: Yes (Hospitalization)
  Sender: FDA-Public Use
  Company Number: 2004238352FR

PATIENT
  Age: 70 Year
  Sex: Female

DRUGS (2)
  1. CELEBREX [Suspect]
     Dosage: 200 MG, QD
     Dates: start: 20030101
  2. HYPERIUM (RILMENIDINE) [Concomitant]

REACTIONS (5)
  - ABDOMINAL PAIN [None]
  - CYSTITIS [None]
  - GASTROINTESTINAL HAEMORRHAGE [None]
  - GASTROINTESTINAL NECROSIS [None]
  - MALAISE [None]
